FAERS Safety Report 4362620-2 (Version None)
Quarter: 2004Q2

REPORT INFORMATION
  Report Type: 
  Country: None (occurrence: None)
  Receive Date: 20040520
  Receipt Date: 20040503
  Transmission Date: 20050107
  Serious: Yes (Hospitalization)
  Sender: FDA-Public Use
  Company Number: TPA2004A00288

PATIENT
  Age: 37 Year
  Sex: Male

DRUGS (5)
  1. ACTOS [Suspect]
     Indication: DIABETES MELLITUS
     Dosage: PER ORAL
     Route: 048
  2. INSULIN [Concomitant]
  3. NORVASC [Concomitant]
  4. ZESTRIL [Concomitant]
  5. ATENOLOL [Concomitant]

REACTIONS (13)
  - FLUID RETENTION [None]
  - HYPERTENSION [None]
  - MACULAR OEDEMA [None]
  - NEOVASCULARISATION [None]
  - RETINAL EXUDATES [None]
  - RETINAL HAEMORRHAGE [None]
  - RETINAL ISCHAEMIA [None]
  - RETINAL MICROANEURYSMS [None]
  - RETINAL VASCULAR OCCLUSION [None]
  - RETINOPATHY HYPERTENSIVE [None]
  - RETINOPATHY PROLIFERATIVE [None]
  - VISUAL ACUITY REDUCED [None]
  - WEIGHT INCREASED [None]
